FAERS Safety Report 9398562 (Version 1)
Quarter: 2013Q3

REPORT INFORMATION
  Report Type: Spontaneous
  Country: US (occurrence: US)
  Receive Date: 20130712
  Receipt Date: 20130712
  Transmission Date: 20140515
  Serious: Yes (Other)
  Sender: FDA-Public Use
  Company Number: US-ELI_LILLY_AND_COMPANY-US201307001299

PATIENT
  Age: 69 Year
  Sex: Male

DRUGS (8)
  1. HUMULIN NPH [Suspect]
     Indication: DIABETES MELLITUS
     Dosage: 10 U, EACH MORNING
     Dates: start: 2006
  2. HUMULIN NPH [Suspect]
     Dosage: 12 U, EACH EVENING
     Dates: start: 2006
  3. HUMAN INSULIN (RDNA ORIGIN) [Suspect]
     Dosage: 12 U, SINGLE
  4. DIAZEPAM [Suspect]
     Dosage: UNK
  5. TREMADOL [Concomitant]
     Indication: MUSCULOSKELETAL PAIN
     Dosage: UNK
  6. LISINOPRIL [Concomitant]
     Dosage: UNK
  7. METFORMIN [Concomitant]
     Dosage: UNK
  8. CLOPIDOGREL [Concomitant]
     Dosage: UNK

REACTIONS (6)
  - Ischaemic stroke [Unknown]
  - Weight decreased [Unknown]
  - Blood glucose increased [Unknown]
  - Somnolence [Unknown]
  - Dizziness [Unknown]
  - Incorrect dose administered [Unknown]
